FAERS Safety Report 12704116 (Version 1)
Quarter: 2016Q3

REPORT INFORMATION
  Report Type: Spontaneous
  Country: FR (occurrence: FR)
  Receive Date: 20160831
  Receipt Date: 20160831
  Transmission Date: 20161109
  Serious: Yes (Hospitalization)
  Sender: FDA-Public Use
  Company Number: FR-TEVA-687375ROM

PATIENT
  Age: 59 Year
  Sex: Male
  Weight: 72 kg

DRUGS (17)
  1. UROMITEXAN [Suspect]
     Active Substance: MESNA
     Route: 048
     Dates: start: 20160211, end: 20160211
  2. POLARAMINE [Suspect]
     Active Substance: DEXCHLORPHENIRAMINE MALEATE
     Dosage: 10 MILLIGRAM DAILY;
     Route: 042
     Dates: start: 20160211, end: 20160211
  3. MABTHERA [Suspect]
     Active Substance: RITUXIMAB
     Route: 041
     Dates: start: 20160211, end: 20160211
  4. ZYLORIC [Suspect]
     Active Substance: ALLOPURINOL
     Indication: PROPHYLAXIS
  5. ZELITREX [Suspect]
     Active Substance: VALACYCLOVIR HYDROCHLORIDE
     Indication: INFECTION PROPHYLAXIS
  6. DOXORUBICINE TEVA 200 MG/100 ML [Suspect]
     Active Substance: DOXORUBICIN
     Route: 041
     Dates: start: 20160211, end: 20160211
  7. METHYLPREDNISOLONE MYLAN [Suspect]
     Active Substance: METHYLPREDNISOLONE
     Route: 041
     Dates: start: 20160211, end: 20160211
  8. ELDISINE [Suspect]
     Active Substance: VINDESINE SULFATE
     Route: 041
     Dates: start: 20160211, end: 20160211
  9. LEDERFOLINE [Suspect]
     Active Substance: LEUCOVORIN CALCIUM
     Indication: INFECTION PROPHYLAXIS
  10. BLEOMYCINE BELLON 15 MG [Suspect]
     Active Substance: BLEOMYCIN SULFATE
     Route: 041
     Dates: start: 20160211, end: 20160211
  11. POLARAMINE [Suspect]
     Active Substance: DEXCHLORPHENIRAMINE MALEATE
     Dosage: R-ACVBP PROTOCOL, 5 MG BY SLOW INTRAVENOUS INJECTION DAY 5
     Route: 042
     Dates: start: 20160216, end: 20160216
  12. PARACETAMOL [Suspect]
     Active Substance: ACETAMINOPHEN
     Route: 041
     Dates: start: 20160211, end: 20160211
  13. METHOTREXATE BIODIM [Suspect]
     Active Substance: METHOTREXATE
     Dates: start: 20160211, end: 20160211
  14. BACTRIM [Suspect]
     Active Substance: SULFAMETHOXAZOLE\TRIMETHOPRIM
     Indication: INFECTION PROPHYLAXIS
  15. ONDANSETRON ACCORD 2 MG/ML [Suspect]
     Active Substance: ONDANSETRON
     Route: 041
     Dates: start: 20160211, end: 20160211
  16. ENDOXAN 1000 MG [Suspect]
     Active Substance: CYCLOPHOSPHAMIDE
     Route: 041
     Dates: start: 20160211, end: 20160211
  17. MESNA EG 100 MG/ML [Suspect]
     Active Substance: MESNA
     Route: 041
     Dates: start: 20160211, end: 20160211

REACTIONS (3)
  - Febrile neutropenia [Recovered/Resolved]
  - Weight decreased [Recovered/Resolved]
  - Stomatitis [Recovered/Resolved]

NARRATIVE: CASE EVENT DATE: 20160220
